FAERS Safety Report 4685674-2 (Version None)
Quarter: 2005Q2

REPORT INFORMATION
  Report Type: 
  Country: None (occurrence: None)
  Receive Date: 20050608
  Receipt Date: 20050524
  Transmission Date: 20051028
  Serious: Yes (Hospitalization)
  Sender: FDA-Public Use
  Company Number: RENA-11365

PATIENT
  Age: 68 Year
  Sex: Female
  Weight: 68.4 kg

DRUGS (13)
  1. RENAGEL [Suspect]
     Indication: HYPERPHOSPHATAEMIA
     Dosage: 0.5 G TID PO
     Route: 048
     Dates: start: 20050223, end: 20050403
  2. RENAGEL [Suspect]
     Indication: HYPERPHOSPHATAEMIA
     Dates: start: 20041101, end: 20041101
  3. LAXATIVES [Concomitant]
  4. BAYASPIRIN [Concomitant]
  5. CALCIUM CARBONATE [Concomitant]
  6. MARZULENE S [Concomitant]
  7. D-SORBITAL [Concomitant]
  8. TAKEPRON [Concomitant]
  9. ALOSENN [Concomitant]
  10. DOPS [Concomitant]
  11. RISUMIC [Concomitant]
  12. LAXOBERON [Concomitant]
  13. KETOPROFEN [Concomitant]

REACTIONS (6)
  - ABDOMINAL PAIN [None]
  - CONDITION AGGRAVATED [None]
  - CONSTIPATION [None]
  - DIVERTICULUM INTESTINAL [None]
  - INTESTINAL OBSTRUCTION [None]
  - VOMITING [None]
